FAERS Safety Report 9269536 (Version 1)
Quarter: 2013Q2

REPORT INFORMATION
  Report Type: Spontaneous
  Country: PA (occurrence: PA)
  Receive Date: 20130503
  Receipt Date: 20130503
  Transmission Date: 20140414
  Serious: Yes (Other)
  Sender: FDA-Public Use
  Company Number: PA-PFIZER INC-2013138420

PATIENT
  Age: 60 Year
  Sex: Female

DRUGS (1)
  1. PRISTIQ [Suspect]
     Dosage: 50 MG, 1X/DAY
     Dates: start: 20130216

REACTIONS (1)
  - Vaginal haemorrhage [Not Recovered/Not Resolved]
